FAERS Safety Report 4944518-1 (Version None)
Quarter: 2006Q1

REPORT INFORMATION
  Report Type: 
  Country: None (occurrence: None)
  Receive Date: 20060315
  Receipt Date: 20060309
  Transmission Date: 20060701
  Serious: Yes (Hospitalization)
  Sender: FDA-Public Use
  Company Number: US-SANOFI-SYNTHELABO-F03200600046

PATIENT
  Age: 704 Month
  Sex: Male

DRUGS (3)
  1. OXALIPLATIN [Suspect]
     Indication: ADENOCARCINOMA PANCREAS
     Route: 042
     Dates: start: 20060203, end: 20060203
  2. AVASTIN [Suspect]
     Indication: ADENOCARCINOMA PANCREAS
     Route: 042
     Dates: start: 20060202, end: 20060202
  3. GEMCITABINE [Suspect]
     Indication: ADENOCARCINOMA PANCREAS
     Route: 042
     Dates: start: 20060202, end: 20060202

REACTIONS (6)
  - DIABETES MELLITUS INADEQUATE CONTROL [None]
  - DIABETIC KETOACIDOSIS [None]
  - GASTROOESOPHAGEAL REFLUX DISEASE [None]
  - HYPERGLYCAEMIA [None]
  - OESOPHAGITIS [None]
  - THROMBOCYTOPENIA [None]
